FAERS Safety Report 23857362 (Version 1)
Quarter: 2024Q2

REPORT INFORMATION
  Report Type: Spontaneous
  Country: CA (occurrence: CA)
  Receive Date: 20240515
  Receipt Date: 20240515
  Transmission Date: 20240716
  Serious: Yes (Other)
  Sender: FDA-Public Use
  Company Number: CA-PFIZER INC-202400105326

PATIENT
  Age: 45 Year
  Sex: Male

DRUGS (14)
  1. RUXIENCE [Suspect]
     Active Substance: RITUXIMAB-PVVR
     Indication: Antineutrophil cytoplasmic antibody
     Dosage: 700 MG, WEEKLY, X 4 DOSES
     Route: 042
     Dates: start: 20240503
  2. RUXIENCE [Suspect]
     Active Substance: RITUXIMAB-PVVR
     Indication: Granulomatosis with polyangiitis
     Dosage: 700 MG, WEEKLY, X 4 DOSES
     Route: 042
     Dates: start: 20240503
  3. RUXIENCE [Suspect]
     Active Substance: RITUXIMAB-PVVR
     Dosage: 700 MG, 6 DAYS
     Route: 042
     Dates: start: 20240509
  4. CALCIUM [Concomitant]
     Active Substance: CALCIUM
     Dosage: 500 MG
  5. FOLIC ACID [Concomitant]
     Active Substance: FOLIC ACID
     Dosage: 15 MG
  6. METHOTREXATE [Concomitant]
     Active Substance: METHOTREXATE
     Dosage: 25 MG, WEEKLY
     Route: 058
     Dates: start: 20190415
  7. METHOTREXATE [Concomitant]
     Active Substance: METHOTREXATE
     Dosage: 7500 UG, FREQUENCY UNKNOWN
  8. PREDNISONE [Concomitant]
     Active Substance: PREDNISONE
     Dosage: 50 MG
     Route: 065
  9. PREDNISONE [Concomitant]
     Active Substance: PREDNISONE
     Dosage: 5 MG, 1X/DAY(DAILY)
     Route: 048
     Dates: start: 2024
  10. PANTOPRAZOLE [Concomitant]
     Active Substance: PANTOPRAZOLE
     Dosage: 1 DF, DOSAGE INFORMATION NOT AVAILABLE
     Route: 065
  11. RAMIPRIL [Concomitant]
     Active Substance: RAMIPRIL
     Dosage: UNK
  12. SYNTHROID [Concomitant]
     Active Substance: LEVOTHYROXINE SODIUM
     Dosage: 25 UG
  13. TENOFOVIR [Concomitant]
     Active Substance: TENOFOVIR
     Dosage: 300 MG
  14. CHOLECALCIFEROL [Concomitant]
     Active Substance: CHOLECALCIFEROL
     Dosage: 2000 IU

REACTIONS (1)
  - Haematuria [Recovering/Resolving]

NARRATIVE: CASE EVENT DATE: 20240504
